FAERS Safety Report 8510905-8 (Version None)
Quarter: 2012Q3

REPORT INFORMATION
  Report Type: 
  Country: None (occurrence: None)
  Receive Date: 20120703
  Receipt Date: 20120625
  Transmission Date: 20120928
  Serious: Yes (Other)
  Sender: FDA-Public Use
  Company Number: AUR-APL-2012-02677

PATIENT
  Age: 35 Year
  Sex: Female

DRUGS (3)
  1. RISPERIDONE [Suspect]
     Indication: PSYCHOTIC DISORDER
     Dosage: 4MG/DAY, UNK
  2. CLOZAPINE [Suspect]
     Indication: SCHIZOPHRENIA, PARANOID TYPE
     Dosage: 25MG/DAY, UNK, 400MG/DAY, UNK, 200MG/DAY, UNK
  3. VALPROIC ACID [Suspect]
     Indication: GRAND MAL CONVULSION
     Dosage: 1000MG/DAY, UNKNOWN

REACTIONS (6)
  - CONDITION AGGRAVATED [None]
  - ASTERIXIS [None]
  - DRUG INTERACTION [None]
  - GRAND MAL CONVULSION [None]
  - ELECTROENCEPHALOGRAM ABNORMAL [None]
  - PSYCHOTIC DISORDER [None]
